FAERS Safety Report 8905499 (Version 1)
Quarter: 2012Q4

REPORT INFORMATION
  Report Type: 
  Country: US (occurrence: US)
  Receive Date: 20121113
  Receipt Date: 20121113
  Transmission Date: 20130627
  Serious: No
  Sender: FDA-Public Use
  Company Number: US-BAYER-2012-114386

PATIENT
  Sex: Female

DRUGS (3)
  1. BEYAZ [Suspect]
     Dosage: UNK
     Dates: start: 201208
  2. LEXAPRO [Suspect]
     Indication: DEPRESSION
  3. UNSPECIFIED INGREDIENT [Suspect]

REACTIONS (2)
  - Unevaluable event [None]
  - Drug interaction [None]
